FAERS Safety Report 5457194-9 (Version None)
Quarter: 2007Q3

REPORT INFORMATION
  Report Type: 
  Country: None (occurrence: None)
  Receive Date: 20070918
  Receipt Date: 20070125
  Transmission Date: 20080115
  Serious: Yes (Hospitalization)
  Sender: FDA-Public Use
  Company Number: US-ASTRAZENECA-2007UW01665

PATIENT
  Age: 45 Year
  Sex: Male

DRUGS (3)
  1. SEROQUEL [Suspect]
     Route: 048
  2. SEROQUEL [Suspect]
     Route: 048
  3. MARIJUANA [Concomitant]

REACTIONS (1)
  - PRIAPISM [None]
